FAERS Safety Report 9552966 (Version 1)
Quarter: 2013Q3

REPORT INFORMATION
  Report Type: Spontaneous
  Country: US (occurrence: None)
  Receive Date: 20130724
  Receipt Date: 20130724
  Transmission Date: 20140515
  Serious: Yes (Other)
  Sender: FDA-Public Use
  Company Number: PHEH2013US003131

PATIENT
  Age: 42 Year
  Sex: Female

DRUGS (3)
  1. GLEEVEC [Suspect]
     Indication: CHRONIC MYELOID LEUKAEMIA
     Route: 048
     Dates: start: 20120426
  2. CIPROFLOXACIN (CIPROFLOXACIN) [Concomitant]
  3. PERCOCET [Concomitant]

REACTIONS (1)
  - Haematochezia [None]
